FAERS Safety Report 7078440-4 (Version None)
Quarter: 2010Q4

REPORT INFORMATION
  Report Type: 
  Country: None (occurrence: None)
  Receive Date: 20101101
  Receipt Date: 20101101
  Transmission Date: 20110411
  Serious: Yes (Other)
  Sender: FDA-Public Use
  Company Number: None

PATIENT
  Age: 67 Year
  Sex: Female

DRUGS (1)
  1. PRAVASTATIN [Suspect]
     Indication: BLOOD CHOLESTEROL INCREASED
     Dosage: ONE TABLET DAILY
     Dates: start: 20100627, end: 20101018

REACTIONS (5)
  - ASTHENIA [None]
  - FATIGUE [None]
  - GASTRIC DISORDER [None]
  - MALAISE [None]
  - PRODUCT ODOUR ABNORMAL [None]
